FAERS Safety Report 7888868-8 (Version None)
Quarter: 2011Q4

REPORT INFORMATION
  Report Type: 
  Country: None (occurrence: None)
  Receive Date: 20111103
  Receipt Date: 20111031
  Transmission Date: 20120403
  Serious: Yes (Death, Life-Threatening, Hospitalization, Other)
  Sender: FDA-Public Use
  Company Number: JP-BAYER-200914712BYL

PATIENT
  Age: 69 Year
  Sex: Female
  Weight: 70 kg

DRUGS (6)
  1. AMLODIPINE [Concomitant]
     Indication: HYPERTENSION
     Dosage: 5 MG (DAILY DOSE), , ORAL
     Route: 048
  2. NEXAVAR [Suspect]
     Indication: HEPATIC NEOPLASM MALIGNANT
     Dosage: 400 MG, BID
     Route: 048
     Dates: start: 20091117, end: 20091130
  3. TRICHLORMETHIAZIDE [Concomitant]
     Indication: HYPERTENSION
     Dosage: 2 MG (DAILY DOSE), , ORAL
     Route: 048
  4. OMEPRAZOLE [Concomitant]
     Indication: GASTROOESOPHAGEAL REFLUX DISEASE
     Dosage: 20 MG (DAILY DOSE), , ORAL
     Route: 048
  5. CANDESARTAN CILEXETIL [Concomitant]
     Indication: HYPERTENSION
     Dosage: 8 MG (DAILY DOSE), , ORAL
     Route: 048
  6. BARACLUDE [Concomitant]
     Indication: HEPATIC CIRRHOSIS
     Dosage: 0.5 MG (DAILY DOSE), , ORAL
     Route: 048

REACTIONS (7)
  - HEPATIC FAILURE [None]
  - BLOOD ALBUMIN DECREASED [None]
  - HYPOTHYROIDISM [None]
  - RASH [None]
  - ERYTHEMA MULTIFORME [None]
  - DIARRHOEA [None]
  - PYREXIA [None]
